FAERS Safety Report 22036250 (Version 10)
Quarter: 2025Q2

REPORT INFORMATION
  Report Type: Report from Study
  Country: JP (occurrence: JP)
  Receive Date: 20230225
  Receipt Date: 20250414
  Transmission Date: 20250716
  Serious: Yes (Other)
  Sender: ABBVIE
  Company Number: JP-TAKEDA-2023TJP002452

PATIENT
  Age: 60 Year
  Sex: Male
  Weight: 62 kg

DRUGS (25)
  1. LEUPROLIDE ACETATE [Suspect]
     Active Substance: LEUPROLIDE ACETATE
     Indication: Bulbospinal muscular atrophy congenital
     Dosage: Q3MONTHS?1ST INJECTION
     Route: 058
     Dates: start: 20180208, end: 20180208
  2. LEUPROLIDE ACETATE [Suspect]
     Active Substance: LEUPROLIDE ACETATE
     Dosage: Q3MONTHS?2ND INJECTION
     Route: 058
     Dates: start: 20180502, end: 20180502
  3. LEUPROLIDE ACETATE [Suspect]
     Active Substance: LEUPROLIDE ACETATE
     Dosage: Q3MONTHS?3RD INJECTION
     Route: 058
     Dates: start: 20180725, end: 20180725
  4. LEUPROLIDE ACETATE [Suspect]
     Active Substance: LEUPROLIDE ACETATE
     Dosage: Q3MONTHS?4TH INJECTION
     Route: 058
     Dates: start: 20181010, end: 20181010
  5. LEUPROLIDE ACETATE [Suspect]
     Active Substance: LEUPROLIDE ACETATE
     Dosage: Q3MONTHS?5TH INJECTION
     Route: 058
     Dates: start: 20181226, end: 20181226
  6. LEUPROLIDE ACETATE [Suspect]
     Active Substance: LEUPROLIDE ACETATE
     Dosage: Q3MONTHS?6TH INJECTION
     Route: 058
     Dates: start: 20190320, end: 20190320
  7. LEUPROLIDE ACETATE [Suspect]
     Active Substance: LEUPROLIDE ACETATE
     Dosage: Q3MONTHS?7TH INJECTION
     Route: 058
     Dates: start: 20190619, end: 20190619
  8. LEUPROLIDE ACETATE [Suspect]
     Active Substance: LEUPROLIDE ACETATE
     Dosage: Q3MONTHS?8TH INJECTION
     Route: 058
     Dates: start: 20190911, end: 20190911
  9. LEUPROLIDE ACETATE [Suspect]
     Active Substance: LEUPROLIDE ACETATE
     Dosage: Q3MONTHS?9TH INJECTION
     Route: 058
     Dates: start: 20191205, end: 20191205
  10. LEUPROLIDE ACETATE [Suspect]
     Active Substance: LEUPROLIDE ACETATE
     Dosage: Q3MONTHS?10TH INJECTION
     Route: 058
     Dates: start: 20200226, end: 20200226
  11. LEUPROLIDE ACETATE [Suspect]
     Active Substance: LEUPROLIDE ACETATE
     Dosage: Q3MONTHS?11TH INJECTION
     Route: 058
     Dates: start: 20200520, end: 20200520
  12. LEUPROLIDE ACETATE [Suspect]
     Active Substance: LEUPROLIDE ACETATE
     Dosage: Q3MONTHS?12TH INJECTION
     Route: 058
     Dates: start: 20200812, end: 20200812
  13. LEUPROLIDE ACETATE [Suspect]
     Active Substance: LEUPROLIDE ACETATE
     Dosage: Q3MONTHS?13TH INJECTION
     Route: 058
     Dates: start: 20201104, end: 20201104
  14. LEUPROLIDE ACETATE [Suspect]
     Active Substance: LEUPROLIDE ACETATE
     Dosage: Q3MONTHS?14TH INJECTION
     Route: 058
     Dates: start: 20210129, end: 20210129
  15. LEUPROLIDE ACETATE [Suspect]
     Active Substance: LEUPROLIDE ACETATE
     Dosage: Q3MONTHS?15TH INJECTION
     Route: 058
     Dates: start: 20210421, end: 20210421
  16. LEUPROLIDE ACETATE [Suspect]
     Active Substance: LEUPROLIDE ACETATE
     Dosage: Q3MONTHS?16TH INJECTION
     Route: 058
     Dates: start: 20210714, end: 20210714
  17. LEUPROLIDE ACETATE [Suspect]
     Active Substance: LEUPROLIDE ACETATE
     Dosage: Q3MONTHS?17TH INJECTION
     Route: 058
     Dates: start: 20211006, end: 20211006
  18. SENNOSIDES A AND B [Concomitant]
     Active Substance: SENNOSIDES A AND B
     Indication: Product used for unknown indication
     Route: 065
     Dates: start: 20200121, end: 20220220
  19. KETOPROFEN [Concomitant]
     Active Substance: KETOPROFEN
     Indication: Intervertebral disc protrusion
     Route: 065
     Dates: start: 20191204, end: 20200108
  20. ACETAMINOPHEN\TRAMADOL HYDROCHLORIDE [Concomitant]
     Active Substance: ACETAMINOPHEN\TRAMADOL HYDROCHLORIDE
     Indication: Intervertebral disc protrusion
     Route: 065
     Dates: start: 201909, end: 20220223
  21. ATORVASTATIN [Concomitant]
     Active Substance: ATORVASTATIN
     Indication: Product used for unknown indication
     Route: 065
     Dates: start: 201912, end: 20220224
  22. REBAMIPIDE [Concomitant]
     Active Substance: REBAMIPIDE
     Indication: Product used for unknown indication
     Route: 065
     Dates: start: 20200115, end: 20220224
  23. CARBOCYSTEINE [Concomitant]
     Active Substance: CARBOCYSTEINE
     Indication: Bulbospinal muscular atrophy congenital
     Route: 065
     Dates: start: 20220907, end: 20230223
  24. LYRICA [Concomitant]
     Active Substance: PREGABALIN
     Indication: Intervertebral disc protrusion
     Route: 065
     Dates: start: 201909, end: 20210128
  25. SHAKUYAKUKANZOTO [Concomitant]
     Active Substance: HERBALS
     Indication: Bulbospinal muscular atrophy congenital
     Route: 065
     Dates: start: 20190320, end: 20190320

REACTIONS (6)
  - Blood creatine phosphokinase increased [Not Recovered/Not Resolved]
  - Aspartate aminotransferase increased [Recovered/Resolved]
  - Injection site induration [Recovered/Resolved]
  - Alanine aminotransferase increased [Recovered/Resolved]
  - Aspartate aminotransferase increased [Not Recovered/Not Resolved]
  - Alanine aminotransferase increased [Not Recovered/Not Resolved]

NARRATIVE: CASE EVENT DATE: 20180208
